FAERS Safety Report 17166556 (Version 1)
Quarter: 2019Q4

REPORT INFORMATION
  Report Type: Other
  Country: US (occurrence: US)
  Receive Date: 20191217
  Receipt Date: 20191217
  Transmission Date: 20200122
  Serious: Yes (Life-Threatening)
  Sender: FDA-Public Use
  Company Number: US-STANDARD HOMEOPATHIC COMPANY-2077933

PATIENT
  Age: 23 Month
  Sex: Female
  Weight: 14.55 kg

DRUGS (2)
  1. COLD N COUGH 4 KIDS [Suspect]
     Active Substance: HOMEOPATHICS
     Indication: PULMONARY CONGESTION
     Route: 048
     Dates: start: 20191201, end: 20191201
  2. COLD N COUGH 4 KIDS [Suspect]
     Active Substance: HOMEOPATHICS
     Indication: RHINORRHOEA
     Route: 048
     Dates: start: 20191201, end: 20191201

REACTIONS (1)
  - Apnoea [Unknown]

NARRATIVE: CASE EVENT DATE: 20191201
